FAERS Safety Report 16555347 (Version 1)
Quarter: 2019Q3

REPORT INFORMATION
  Report Type: Spontaneous
  Country: SE (occurrence: SE)
  Receive Date: 20190710
  Receipt Date: 20190710
  Transmission Date: 20191004
  Serious: Yes (Disabling)
  Sender: FDA-Public Use
  Company Number: SE-TEVA-2019-SE-1074512

PATIENT
  Age: 62 Year
  Sex: Female
  Weight: 57 kg

DRUGS (3)
  1. MIRTAZAPIN ACTAVIS 15 MG FILMDRAGERAD TABLETT [Suspect]
     Active Substance: MIRTAZAPINE
     Indication: DEPRESSION
     Dosage: 1 TABLETT 1-2 TIMMAR F?RE S?NGG?ENDE, TILLS VIDARE.
     Route: 065
     Dates: start: 20190620, end: 20190621
  2. ZOPIKLON [Concomitant]
     Active Substance: ZOPICLONE
     Dates: start: 2004
  3. CITALOPRAM [Concomitant]
     Active Substance: CITALOPRAM HYDROBROMIDE
     Dates: start: 2012

REACTIONS (1)
  - Formication [Recovered/Resolved with Sequelae]

NARRATIVE: CASE EVENT DATE: 20190620
